FAERS Safety Report 7500681-X (Version None)
Quarter: 2011Q2

REPORT INFORMATION
  Report Type: 
  Country: None (occurrence: None)
  Receive Date: 20110524
  Receipt Date: 20110511
  Transmission Date: 20111010
  Serious: No
  Sender: FDA-Public Use
  Company Number: FR-MERCK-1105FRA00053

PATIENT
  Age: 79 Year
  Sex: Male

DRUGS (5)
  1. GLYBURIDE [Concomitant]
     Indication: DIABETES MELLITUS
     Route: 048
     Dates: end: 20110101
  2. JANUMET [Suspect]
     Indication: DIABETES MELLITUS
     Route: 048
     Dates: start: 20110101, end: 20110301
  3. ASPIRIN LYSINE [Concomitant]
     Route: 048
  4. METFORMIN [Concomitant]
     Indication: DIABETES MELLITUS
     Route: 048
     Dates: end: 20110101
  5. ACETAMINOPHEN [Concomitant]
     Route: 048

REACTIONS (6)
  - FATIGUE [None]
  - SWOLLEN TONGUE [None]
  - HYPOACUSIS [None]
  - ARTHRALGIA [None]
  - WEIGHT DECREASED [None]
  - DECREASED APPETITE [None]
